FAERS Safety Report 24803943 (Version 1)
Quarter: 2025Q1

REPORT INFORMATION
  Report Type: Spontaneous
  Country: US (occurrence: US)
  Receive Date: 20250103
  Receipt Date: 20250103
  Transmission Date: 20250409
  Serious: Yes (Other)
  Sender: CSL BEHRING
  Company Number: US-BEH-2024190669

PATIENT
  Sex: Female
  Weight: 75.737 kg

DRUGS (4)
  1. PRIVIGEN [Suspect]
     Active Substance: HUMAN IMMUNOGLOBULIN G
     Indication: Chronic inflammatory demyelinating polyradiculoneuropathy
     Dosage: 25 G, QMT, EACH DOSE FOR 5 DAYS IN A ROW EACH MONTH
     Route: 065
     Dates: start: 202405
  2. PRIVIGEN [Suspect]
     Active Substance: HUMAN IMMUNOGLOBULIN G
     Dosage: 25 G, QMT,  EACH DOSE FOR 5 DAYS IN A ROW EACH MONTH
     Route: 065
     Dates: start: 202406
  3. PRIVIGEN [Suspect]
     Active Substance: HUMAN IMMUNOGLOBULIN G
     Dosage: 25 G, QMT, EACH DOSE FOR 5 DAYS IN A ROW EACH MONTH
     Route: 065
     Dates: start: 202407
  4. PRIVIGEN [Suspect]
     Active Substance: HUMAN IMMUNOGLOBULIN G
     Dosage: 25 G , QMT, EACH DOSE FOR 5 DAYS IN A ROW EACH MONTH
     Route: 065
     Dates: start: 202408

REACTIONS (6)
  - Renal impairment [Unknown]
  - Drug ineffective [Unknown]
  - Blood parathyroid hormone increased [Unknown]
  - Muscle spasms [Unknown]
  - Myalgia [Unknown]
  - Bone pain [Unknown]
